FAERS Safety Report 8615573-2 (Version None)
Quarter: 2012Q3

REPORT INFORMATION
  Report Type: 
  Country: None (occurrence: None)
  Receive Date: 20120823
  Receipt Date: 20120822
  Transmission Date: 20120928
  Serious: Yes (Hospitalization, Other)
  Sender: FDA-Public Use
  Company Number: PHHY2012NZ072450

PATIENT
  Sex: Male

DRUGS (2)
  1. CLOZARIL [Suspect]
     Indication: SCHIZOPHRENIA
     Dosage: 250 MG
     Dates: start: 20061109
  2. CLOZARIL [Suspect]
     Dosage: 200 MG, UNK

REACTIONS (2)
  - MENTAL IMPAIRMENT [None]
  - DEMENTIA [None]
